FAERS Safety Report 14820047 (Version 1)
Quarter: 2018Q2

REPORT INFORMATION
  Report Type: Spontaneous
  Country: JP (occurrence: JP)
  Receive Date: 20180427
  Receipt Date: 20180427
  Transmission Date: 20180711
  Serious: Yes (Hospitalization)
  Sender: FDA-Public Use
  Company Number: JP-BIOGEN-2018BI00557396

PATIENT
  Age: 48 Year
  Sex: Female

DRUGS (4)
  1. REMINYL [Concomitant]
     Active Substance: GALANTAMINE
     Route: 065
     Dates: start: 20180320
  2. CRAVIT [Concomitant]
     Active Substance: LEVOFLOXACIN
     Indication: PNEUMONIA
     Route: 065
     Dates: start: 20180409
  3. TECFIDERA [Suspect]
     Active Substance: DIMETHYL FUMARATE
     Indication: MULTIPLE SCLEROSIS
     Route: 048
     Dates: start: 20180307
  4. TECFIDERA [Suspect]
     Active Substance: DIMETHYL FUMARATE
     Route: 048

REACTIONS (2)
  - Pneumonia [Unknown]
  - Rash [Unknown]

NARRATIVE: CASE EVENT DATE: 201804
